FAERS Safety Report 12415761 (Version 2)
Quarter: 2016Q3

REPORT INFORMATION
  Report Type: Spontaneous
  Country: DE (occurrence: DE)
  Receive Date: 20160530
  Receipt Date: 20160707
  Transmission Date: 20161109
  Serious: Yes (Other)
  Sender: FDA-Public Use
  Company Number: DE-ROCHE-1763247

PATIENT
  Age: 81 Year
  Sex: Female

DRUGS (3)
  1. XARELTO [Concomitant]
     Active Substance: RIVAROXABAN
     Route: 048
  2. ZELBORAF [Suspect]
     Active Substance: VEMURAFENIB
     Indication: METASTATIC MALIGNANT MELANOMA
     Route: 048
     Dates: start: 20140905
  3. ZELBORAF [Suspect]
     Active Substance: VEMURAFENIB
     Dosage: THERAPY END DATE: 25-SEP-2014
     Route: 048
     Dates: start: 20140911

REACTIONS (14)
  - Electrocardiogram QT prolonged [Unknown]
  - Ill-defined disorder [Unknown]
  - Neoplasm [Unknown]
  - Diffuse alopecia [Unknown]
  - Pleural effusion [Unknown]
  - Visual field defect [Unknown]
  - Pain [Unknown]
  - Oedema peripheral [Unknown]
  - Hypokalaemia [Unknown]
  - Solar dermatitis [Unknown]
  - Urinary tract infection [Unknown]
  - Squamous cell carcinoma [Unknown]
  - Rash pustular [Recovered/Resolved]
  - Palmar-plantar erythrodysaesthesia syndrome [Unknown]

NARRATIVE: CASE EVENT DATE: 20140925
